FAERS Safety Report 8958519 (Version 2)
Quarter: 2013Q2

REPORT INFORMATION
  Report Type: Spontaneous
  Country: GB (occurrence: None)
  Receive Date: 20121107
  Receipt Date: 20130411
  Transmission Date: 20140414
  Serious: Yes (Death, Life-Threatening, Hospitalization, Disabling)
  Sender: FDA-Public Use
  Company Number: 2012033765

PATIENT
  Age: 76 Year
  Sex: Male

DRUGS (14)
  1. RIASTAP [Suspect]
     Indication: INTRA-THORACIC AORTIC ANEURYSM REPAIR
     Route: 042
     Dates: start: 20121019, end: 20121019
  2. VENTOLIN /00139501/ (SALBUTAMOL) [Concomitant]
  3. SERETIDE /01420901/  (SERETIDE) [Concomitant]
  4. DOXAZOSIN (DOXAZOSIN) [Concomitant]
  5. SALBUTAMOL (SALBUTAMOL) [Concomitant]
  6. SALINE /01783401/ (SALINE /01783401/) [Concomitant]
  7. OMEPRAZOLE (OMEPRAZOLE) [Concomitant]
  8. PROTAMINE (PROTAMINE) [Concomitant]
  9. REMIFENTANIL (REMIFENTANIL) [Concomitant]
  10. GLYCOPHOS(GLYCEROPHOSPHATE SODIUM) [Concomitant]
  11. FUROSEMIDE(FUROSEMIDE) [Concomitant]
  12. CALCIUM GLUCONATE (CALCIUM GLUCONATE) [Concomitant]
  13. ASPIRIN /00002701/ (ACETYLSALICYLIC ACID) [Concomitant]
  14. TAZOCIN(PIP/TAZO) [Concomitant]

REACTIONS (2)
  - Cerebrovascular accident [None]
  - Agitation [None]
